FAERS Safety Report 12538059 (Version 1)
Quarter: 2016Q3

REPORT INFORMATION
  Report Type: Spontaneous
  Country: NL (occurrence: NL)
  Receive Date: 20160707
  Receipt Date: 20160707
  Transmission Date: 20161109
  Serious: Yes (Other)
  Sender: FDA-Public Use
  Company Number: NL-MYLANLABS-2016M1027512

PATIENT

DRUGS (4)
  1. COZAAR [Concomitant]
     Active Substance: LOSARTAN POTASSIUM
     Indication: HYPERTENSION
     Dosage: UNK (100 MG DIVIDED OVER DTHE DAY NOS)
  2. ATENOLOL. [Concomitant]
     Active Substance: ATENOLOL
     Indication: HYPERTENSION
     Dosage: UNK (50 MG DIVIDED OVER THE DAY)
  3. SPIRONOLACTON ACCORD [Concomitant]
     Indication: HYPERTENSION
     Dosage: UNK
     Dates: start: 2014, end: 2015
  4. SPIRONOLACTON MYLAN 25 MG [Suspect]
     Active Substance: SPIRONOLACTONE
     Indication: HYPERTENSION
     Dosage: 12.5 MG, QD
     Route: 048
     Dates: start: 2015

REACTIONS (2)
  - Endometrial cancer [Unknown]
  - Dizziness [Recovered/Resolved]

NARRATIVE: CASE EVENT DATE: 201505
